FAERS Safety Report 8517429-2 (Version None)
Quarter: 2012Q3

REPORT INFORMATION
  Report Type: 
  Country: None (occurrence: None)
  Receive Date: 20120718
  Receipt Date: 20120713
  Transmission Date: 20120928
  Serious: Yes (Hospitalization)
  Sender: FDA-Public Use
  Company Number: US-PFIZER INC-2012152686

PATIENT
  Sex: Female
  Weight: 90 kg

DRUGS (6)
  1. ADVAIR HFA [Concomitant]
     Indication: ASTHMA
     Dosage: UNK
  2. NORVASC [Suspect]
     Indication: HYPERTENSION
     Dosage: 5 MG, ONCE DAILY
     Route: 048
     Dates: start: 20100215
  3. PROBIOTICS [Concomitant]
     Dosage: UNK
  4. FISH OIL [Concomitant]
     Dosage: UNK
  5. BENAZEPRIL [Concomitant]
     Dosage: UNK
  6. IPRATROPIUM BROMIDE AND ALBUTEROL SULFATE [Concomitant]
     Indication: ASTHMA
     Dosage: UNK

REACTIONS (2)
  - PARAESTHESIA [None]
  - INTERVERTEBRAL DISC DISORDER [None]
